FAERS Safety Report 24942222 (Version 3)
Quarter: 2025Q1

REPORT INFORMATION
  Report Type: Spontaneous
  Country: GR (occurrence: GR)
  Receive Date: 20250207
  Receipt Date: 20250310
  Transmission Date: 20250409
  Serious: No
  Sender: PFIZER
  Company Number: GR-PFIZER INC-PV202500012905

PATIENT
  Age: 12 Year
  Sex: Male

DRUGS (2)
  1. GENOTROPIN [Suspect]
     Active Substance: SOMATROPIN
     Indication: Dwarfism
     Dosage: 1.2 MG, DAILY
     Route: 058
     Dates: start: 20240313
  2. GENOTROPIN [Suspect]
     Active Substance: SOMATROPIN
     Indication: Growth hormone deficiency

REACTIONS (5)
  - Device physical property issue [Unknown]
  - Device leakage [Unknown]
  - Device use issue [Unknown]
  - Product knowledge deficit [Unknown]
  - Wrong technique in device usage process [Unknown]
